FAERS Safety Report 24198511 (Version 1)
Quarter: 2024Q3

REPORT INFORMATION
  Report Type: Spontaneous
  Country: ES (occurrence: ES)
  Receive Date: 20240812
  Receipt Date: 20240812
  Transmission Date: 20241017
  Serious: Yes (Life-Threatening, Hospitalization, Other)
  Sender: AUROBINDO
  Company Number: ES-AEMPS-1555256

PATIENT
  Age: 80 Year
  Sex: Female
  Weight: 35 kg

DRUGS (3)
  1. DIAZEPAM [Interacting]
     Active Substance: DIAZEPAM
     Indication: Dystonia
     Dosage: 7.5MG ,ONCE A DAY(5MG 1-0-1/2)
     Route: 048
     Dates: start: 20240314, end: 20240725
  2. RIVOTRIL [Interacting]
     Active Substance: CLONAZEPAM
     Indication: Anxiety
     Dosage: 0.5MG,ONCE A DAY (0-0-1)
     Route: 048
     Dates: start: 20210719
  3. ARTANE [Concomitant]
     Active Substance: TRIHEXYPHENIDYL HYDROCHLORIDE
     Indication: Dystonia
     Dosage: 2MG/12H
     Route: 048
     Dates: start: 20240205

REACTIONS (1)
  - Depressed level of consciousness [Recovered/Resolved]

NARRATIVE: CASE EVENT DATE: 20240725
